FAERS Safety Report 13305430 (Version 1)
Quarter: 2017Q1

REPORT INFORMATION
  Report Type: Spontaneous
  Country: US (occurrence: US)
  Receive Date: 20170308
  Receipt Date: 20170308
  Transmission Date: 20170428
  Serious: No
  Sender: FDA-Public Use
  Company Number: US-BAUSCH-BL-2017-000781

PATIENT

DRUGS (1)
  1. UCERIS [Suspect]
     Active Substance: BUDESONIDE
     Indication: COLITIS MICROSCOPIC
     Route: 065
     Dates: start: 2016

REACTIONS (2)
  - Product use issue [Unknown]
  - Medication residue present [Unknown]

NARRATIVE: CASE EVENT DATE: 20170107
